FAERS Safety Report 16710740 (Version 1)
Quarter: 2019Q3

REPORT INFORMATION
  Report Type: Spontaneous
  Country: FR (occurrence: FR)
  Receive Date: 20190816
  Receipt Date: 20190816
  Transmission Date: 20191004
  Serious: Yes (Hospitalization)
  Sender: FDA-Public Use
  Company Number: FR-MYLANLABS-2019M1075744

PATIENT
  Age: 42 Year
  Sex: Male
  Weight: 103 kg

DRUGS (22)
  1. TAZOBACTAM [Suspect]
     Active Substance: TAZOBACTAM
     Indication: STAPHYLOCOCCAL INFECTION
     Dosage: VOIR COMMENTAIRE
     Route: 042
     Dates: start: 20190125, end: 20190130
  2. PIPERACILLINE                      /00502401/ [Suspect]
     Active Substance: PIPERACILLIN
     Indication: STAPHYLOCOCCAL INFECTION
     Dosage: VOIR COMMENTAIRE
     Route: 042
     Dates: start: 20190125, end: 20190130
  3. KETAMINE [Concomitant]
     Active Substance: KETAMINE
     Dosage: UNK
     Route: 042
     Dates: start: 20190125, end: 20190126
  4. VANCOMYCIN [Suspect]
     Active Substance: VANCOMYCIN
     Indication: STAPHYLOCOCCAL INFECTION
     Dosage: 3 GRAM, QD
     Route: 042
     Dates: start: 20190125, end: 20190128
  5. SEEBRI BREEZHALER [Concomitant]
     Active Substance: GLYCOPYRROLATE
     Dosage: VOIR COMMENTAIRE
     Route: 055
  6. ESOMEPRAZOLE. [Concomitant]
     Active Substance: ESOMEPRAZOLE MAGNESIUM
     Dosage: VOIR COMMENTAIRE
     Route: 048
  7. METHADONE [Concomitant]
     Active Substance: METHADONE HYDROCHLORIDE
     Dosage: 60 MILLIGRAM, QD
     Route: 048
  8. SERETIDE [Concomitant]
     Active Substance: FLUTICASONE PROPIONATE\SALMETEROL XINAFOATE
     Dosage: 2-0-2
     Route: 055
  9. SERESTA [Concomitant]
     Active Substance: OXAZEPAM
     Dosage: VOIR COMMENTAIRE
     Route: 048
  10. OXYNORM [Concomitant]
     Active Substance: OXYCODONE HYDROCHLORIDE
     Dosage: 1 AMPOULE
     Route: 042
     Dates: start: 20190125, end: 20190125
  11. NORMACOL LAVAMENT [Concomitant]
     Dosage: 1 DOSAGE FORM, QD
     Route: 054
     Dates: start: 20190125, end: 20190211
  12. LOVENOX [Concomitant]
     Active Substance: ENOXAPARIN SODIUM
     Dosage: 4000 INTERNATIONAL UNIT, QD
     Route: 058
     Dates: start: 20190125, end: 20190127
  13. GENTAMICINE                        /00047101/ [Suspect]
     Active Substance: GENTAMICIN
     Indication: STAPHYLOCOCCAL INFECTION
     Dosage: 320 MILLIGRAM, QD
     Route: 042
     Dates: start: 20190126, end: 20190127
  14. OXYCODONE [Concomitant]
     Active Substance: OXYCODONE
     Dosage: 40 MILLIGRAM, QD
     Route: 048
  15. MOVICOL [Concomitant]
     Active Substance: POLYETHYLENE GLYCOL 3350\POTASSIUM CHLORIDE\SODIUM BICARBONATE\SODIUM CHLORIDE
     Dosage: 1 DOSAGE FORM, QD
     Route: 048
     Dates: start: 20190124
  16. MIANSERINE                         /00390601/ [Concomitant]
     Active Substance: MIANSERIN
     Dosage: 60 MILLIGRAM, QD
     Route: 048
  17. EDUCTYL [Concomitant]
     Active Substance: POTASSIUM BITARTRATE\SODIUM BICARBONATE
     Dosage: UNK
     Route: 054
     Dates: start: 20190125, end: 20190211
  18. DROPERIDOL. [Concomitant]
     Active Substance: DROPERIDOL
     Dosage: UNK
     Route: 042
     Dates: start: 20190125, end: 20190127
  19. LAROXYL [Concomitant]
     Active Substance: AMITRIPTYLINE HYDROCHLORIDE
     Dosage: 1 DOSAGE FORM, QD
     Route: 048
  20. SETOFILM [Concomitant]
     Active Substance: ONDANSETRON
     Dosage: 1 DOSAGE FORM, QD
     Route: 048
     Dates: start: 20190124
  21. DOLIPRANE [Concomitant]
     Active Substance: ACETAMINOPHEN
     Dosage: 4 GRAM, QD
     Route: 048
     Dates: start: 20190124
  22. PREGABALINE [Concomitant]
     Active Substance: PREGABALIN
     Dosage: 150 MILLIGRAM, QD
     Route: 048
     Dates: start: 20190125, end: 20190128

REACTIONS (3)
  - Overdose [Recovered/Resolved]
  - Renal tubular necrosis [Recovered/Resolved]
  - Acute kidney injury [Recovered/Resolved]

NARRATIVE: CASE EVENT DATE: 20190126
